FAERS Safety Report 7503380-3 (Version None)
Quarter: 2011Q2

REPORT INFORMATION
  Report Type: 
  Country: None (occurrence: None)
  Receive Date: 20110525
  Receipt Date: 20110516
  Transmission Date: 20111010
  Serious: Yes (Life-Threatening, Hospitalization)
  Sender: FDA-Public Use
  Company Number: A0927610A

PATIENT
  Age: 22 Year
  Sex: Male

DRUGS (5)
  1. LAMICTAL XR [Suspect]
     Dosage: 400MG TWICE PER DAY
     Route: 065
  2. PREDNISONE [Concomitant]
  3. ALLEGRA [Concomitant]
  4. LAMICTAL [Suspect]
     Indication: EPILEPSY
     Dosage: 400MG TWICE PER DAY
     Route: 048
     Dates: start: 20080111, end: 20100810
  5. AMBIEN [Concomitant]

REACTIONS (3)
  - NEUTROPENIA [None]
  - INAPPROPRIATE SCHEDULE OF DRUG ADMINISTRATION [None]
  - PLATELET COUNT DECREASED [None]
